FAERS Safety Report 6429295-X (Version None)
Quarter: 2009Q4

REPORT INFORMATION
  Report Type: 
  Country: None (occurrence: None)
  Receive Date: 20091105
  Receipt Date: 20091102
  Transmission Date: 20100525
  Serious: Yes (Death, Hospitalization)
  Sender: FDA-Public Use
  Company Number: PHHY2009MX47803

PATIENT
  Sex: Female

DRUGS (1)
  1. TRILEPTAL [Suspect]
     Indication: EPILEPSY
     Dosage: 7 TABLETS PER DAY
     Route: 048
     Dates: start: 20071001

REACTIONS (3)
  - CONVULSION [None]
  - DEATH [None]
  - RENAL DISORDER [None]
